FAERS Safety Report 5946958-0 (Version None)
Quarter: 2008Q4

REPORT INFORMATION
  Report Type: 
  Country: None (occurrence: None)
  Receive Date: 20081107
  Receipt Date: 20081107
  Transmission Date: 20090506
  Serious: Yes (Hospitalization)
  Sender: FDA-Public Use
  Company Number: None

PATIENT
  Sex: Male
  Weight: 109.2 kg

DRUGS (1)
  1. CISPLATIN [Suspect]
     Dosage: 195 MG
     Dates: end: 20081027

REACTIONS (4)
  - DEHYDRATION [None]
  - DYSPHAGIA [None]
  - HYPOPHAGIA [None]
  - PAIN [None]
